FAERS Safety Report 17584510 (Version 3)
Quarter: 2020Q3

REPORT INFORMATION
  Report Type: Spontaneous
  Country: CA (occurrence: CA)
  Receive Date: 20200326
  Receipt Date: 20200806
  Transmission Date: 20201102
  Serious: Yes (Hospitalization, Other)
  Sender: FDA-Public Use
  Company Number: CA-AMGEN-CANSP2019215675

PATIENT
  Age: 57 Year
  Sex: Female

DRUGS (2)
  1. HYDROXYCHLOROQUINE [Concomitant]
     Active Substance: HYDROXYCHLOROQUINE
     Dosage: 300MG DAILY
     Route: 048
     Dates: start: 2006
  2. ENBREL [Suspect]
     Active Substance: ETANERCEPT
     Indication: PRODUCT USED FOR UNKNOWN INDICATION
     Dosage: UNK, WEEKLY
     Route: 065
     Dates: start: 2008, end: 200809

REACTIONS (6)
  - Drug ineffective [Unknown]
  - Treatment failure [Unknown]
  - Injection site reaction [Unknown]
  - Illness [Unknown]
  - Wound [Unknown]
  - Cellulitis [Unknown]
